FAERS Safety Report 18005613 (Version 1)
Quarter: 2020Q3

REPORT INFORMATION
  Report Type: Spontaneous
  Country: US (occurrence: US)
  Receive Date: 20200709
  Receipt Date: 20200709
  Transmission Date: 20201103
  Serious: No
  Sender: FDA-Public Use
  Company Number: None

PATIENT
  Age: 28 Year
  Sex: Female
  Weight: 71.67 kg

DRUGS (1)
  1. NUVARING [Suspect]
     Active Substance: ETHINYL ESTRADIOL\ETONOGESTREL
     Indication: CONTRACEPTION
     Dosage: ?          OTHER DOSE:NUVA RING;?
     Route: 067
     Dates: start: 20200101, end: 20200501

REACTIONS (1)
  - Drug hypersensitivity [None]

NARRATIVE: CASE EVENT DATE: 20200330
